FAERS Safety Report 7129972-1 (Version None)
Quarter: 2010Q4

REPORT INFORMATION
  Report Type: 
  Country: None (occurrence: None)
  Receive Date: 20101130
  Receipt Date: 20101122
  Transmission Date: 20110411
  Serious: Yes (Hospitalization)
  Sender: FDA-Public Use
  Company Number: DE-ABBOTT-10P-062-0687300-00

PATIENT
  Sex: Female

DRUGS (1)
  1. ERGENYL CHRONOSPHERE [Suspect]
     Indication: BIPOLAR DISORDER
     Dosage: PROLONGED-RELEASE GRANULES
     Route: 048
     Dates: start: 20090101, end: 20100101

REACTIONS (2)
  - HYPOMANIA [None]
  - MEDICATION RESIDUE [None]
